FAERS Safety Report 7301400-2 (Version None)
Quarter: 2011Q1

REPORT INFORMATION
  Report Type: 
  Country: None (occurrence: None)
  Receive Date: 20110218
  Receipt Date: 20110207
  Transmission Date: 20110831
  Serious: Yes (Other)
  Sender: FDA-Public Use
  Company Number: TR-TEVA-266825ISR

PATIENT
  Age: 26 Year
  Sex: Female

DRUGS (4)
  1. METHOTREXATE [Suspect]
  2. DOXORUBICIN [Suspect]
  3. PREDNISOLONE [Suspect]
  4. VINCRISTINE [Suspect]

REACTIONS (1)
  - BREAST CANCER [None]
